FAERS Safety Report 21520488 (Version 2)
Quarter: 2023Q1

REPORT INFORMATION
  Report Type: Spontaneous
  Country: IL (occurrence: US)
  Receive Date: 20221028
  Receipt Date: 20230324
  Transmission Date: 20230417
  Serious: Yes (Other)
  Sender: FDA-Public Use
  Company Number: IL-VERTEX PHARMACEUTICALS-2020-018591

PATIENT
  Sex: Female
  Weight: 86 kg

DRUGS (3)
  1. TRIKAFTA [Suspect]
     Active Substance: ELEXACAFTOR\IVACAFTOR\TEZACAFTOR
     Indication: Cystic fibrosis
     Dosage: 2 TABLETS AM + 1 TABLET PM
     Route: 048
     Dates: start: 20191203
  2. MEROPENEM [Concomitant]
     Active Substance: MEROPENEM
     Indication: Achromobacter infection
     Route: 055
  3. MEROPENEM [Concomitant]
     Active Substance: MEROPENEM
     Indication: Stenotrophomonas infection

REACTIONS (5)
  - Pre-eclampsia [Unknown]
  - Gestational diabetes [Unknown]
  - Foetal heart rate decreased [Unknown]
  - Exposure during pregnancy [Unknown]
  - Blood glucose decreased [Unknown]

NARRATIVE: CASE EVENT DATE: 20200101
